FAERS Safety Report 21086608 (Version 1)
Quarter: 2022Q3

REPORT INFORMATION
  Report Type: Spontaneous
  Country: US (occurrence: US)
  Receive Date: 20220715
  Receipt Date: 20220715
  Transmission Date: 20221026
  Serious: Yes (Hospitalization, Other)
  Sender: FDA-Public Use
  Company Number: US-UNITED THERAPEUTICS-UNT-2022-015351

PATIENT
  Age: 77 Year
  Sex: Female

DRUGS (3)
  1. TYVASO [Suspect]
     Active Substance: TREPROSTINIL
     Indication: Pulmonary hypertension
     Dosage: UNK
     Dates: start: 20220517
  2. TYVASO [Suspect]
     Active Substance: TREPROSTINIL
     Indication: Lung disorder
     Dosage: 54 ?G, QID
     Dates: start: 2022, end: 202207
  3. TYVASO [Suspect]
     Active Substance: TREPROSTINIL
     Indication: Hypoxia

REACTIONS (4)
  - Syncope [Unknown]
  - Hypoxia [Unknown]
  - Lung disorder [Unknown]
  - Off label use [Unknown]

NARRATIVE: CASE EVENT DATE: 20220517
